FAERS Safety Report 5327387-X (Version None)
Quarter: 2007Q2

REPORT INFORMATION
  Report Type: 
  Country: None (occurrence: None)
  Receive Date: 20070220
  Receipt Date: 20061226
  Transmission Date: 20071010
  Serious: No
  Sender: FDA-Public Use
  Company Number: WAES 0612USA03841

PATIENT
  Age: 78 Year
  Sex: Female

DRUGS (4)
  1. JANUVIA [Suspect]
     Indication: DIABETES MELLITUS NON-INSULIN-DEPENDENT
     Dosage: 100  MG/DAILY/PO
     Route: 048
     Dates: start: 20061217, end: 20061225
  2. AMARYL [Concomitant]
  3. DIOVAN [Concomitant]
  4. ALLOPURINOL [Concomitant]

REACTIONS (1)
  - PHARYNGOLARYNGEAL PAIN [None]
